FAERS Safety Report 10162277 (Version 1)
Quarter: 2014Q2

REPORT INFORMATION
  Report Type: Spontaneous
  Country: US (occurrence: US)
  Receive Date: 20140509
  Receipt Date: 20140509
  Transmission Date: 20141212
  Serious: No
  Sender: FDA-Public Use
  Company Number: US-BAYER-2014-068826

PATIENT
  Age: 85 Year
  Sex: Female
  Weight: 61 kg

DRUGS (4)
  1. ALEVE CAPLET [Suspect]
     Indication: PAIN
     Dosage: 1 DF, QD
     Route: 048
     Dates: start: 20140502
  2. OSTEO BI-FLEX [Concomitant]
  3. CENTRUM SILVER [Concomitant]
  4. CALCIUM D3 [CALCIUM,COLECALCIFEROL] [Concomitant]

REACTIONS (1)
  - Drug ineffective [None]
